FAERS Safety Report 7733984-4 (Version None)
Quarter: 2011Q3

REPORT INFORMATION
  Report Type: 
  Country: None (occurrence: None)
  Receive Date: 20110907
  Receipt Date: 20110829
  Transmission Date: 20111222
  Serious: Yes (Death, Other)
  Sender: FDA-Public Use
  Company Number: SE-ROCHE-661513

PATIENT
  Sex: Female

DRUGS (6)
  1. ZOMETA [Suspect]
     Route: 042
     Dates: start: 20070301, end: 20070401
  2. IBUPROFEN [Concomitant]
  3. IBANDRONATE SODIUM [Suspect]
     Indication: BREAST CANCER METASTATIC
     Dosage: DOSE: 1 DAILY
     Route: 048
     Dates: start: 20070601, end: 20070901
  4. ARIMIDEX [Concomitant]
  5. MORPHINE [Concomitant]
     Dosage: DRUG: MORFIN
  6. IBANDRONATE SODIUM [Suspect]
     Route: 048
     Dates: start: 20071101

REACTIONS (4)
  - DISEASE PROGRESSION [None]
  - OSTEONECROSIS OF JAW [None]
  - BONE PAIN [None]
  - INFECTION [None]
